FAERS Safety Report 9132137 (Version 2)
Quarter: 2013Q1

REPORT INFORMATION
  Report Type: Spontaneous
  Country: US (occurrence: US)
  Receive Date: 20130301
  Receipt Date: 20130308
  Transmission Date: 20140127
  Serious: Yes (Hospitalization, Other)
  Sender: FDA-Public Use
  Company Number: US-NOVOPROD-371561

PATIENT
  Age: 56 Year
  Sex: Female

DRUGS (2)
  1. INSULIN [Suspect]
     Indication: PRODUCT USED FOR UNKNOWN INDICATION
     Route: 058
  2. NOVOLOG [Suspect]
     Indication: PRODUCT USED FOR UNKNOWN INDICATION
     Dosage: UNK
     Route: 058

REACTIONS (4)
  - Drug dispensing error [Recovered/Resolved]
  - Myocardial infarction [Recovered/Resolved]
  - Wrong drug administered [Recovered/Resolved]
  - Diabetic ketoacidosis [Recovered/Resolved]
